FAERS Safety Report 20131682 (Version 3)
Quarter: 2021Q4

REPORT INFORMATION
  Report Type: Spontaneous
  Country: US (occurrence: US)
  Receive Date: 20211130
  Receipt Date: 20211216
  Transmission Date: 20220303
  Serious: No
  Sender: FDA-Public Use
  Company Number: US-LUPIN PHARMACEUTICALS INC.-2021-23168

PATIENT
  Sex: Female
  Weight: 81.64 kg

DRUGS (1)
  1. CLOBETASOL PROPIONATE [Suspect]
     Active Substance: CLOBETASOL PROPIONATE
     Indication: Lichen sclerosus
     Dosage: UNK, EARLIER SHE USED THE MEDICATION ON DAILY BASIS NOW SHE USES IT WHENEVER SHE HAS AN OUTBREAK
     Route: 061

REACTIONS (4)
  - Product administered at inappropriate site [Unknown]
  - Product prescribing error [Unknown]
  - Product use issue [Unknown]
  - No adverse event [Unknown]
